FAERS Safety Report 10418139 (Version 2)
Quarter: 2014Q3

REPORT INFORMATION
  Report Type: Spontaneous
  Country: CA (occurrence: CA)
  Receive Date: 20140829
  Receipt Date: 20140829
  Transmission Date: 20150326
  Serious: Yes (Other)
  Sender: FDA-Public Use
  Company Number: CA-ABBVIE-14P-028-1267815-00

PATIENT
  Age: 78 Year
  Sex: Male

DRUGS (3)
  1. PREDNISONE. [Interacting]
     Active Substance: PREDNISONE
     Indication: PITUITARY TUMOUR BENIGN
  2. CLARITHROMYCIN. [Suspect]
     Active Substance: CLARITHROMYCIN
     Indication: PRODUCT USED FOR UNKNOWN INDICATION
  3. LEVOTHYROXINE [Concomitant]
     Active Substance: LEVOTHYROXINE
     Indication: PITUITARY TUMOUR BENIGN

REACTIONS (2)
  - Mania [Recovered/Resolved]
  - Drug interaction [Recovered/Resolved]
